FAERS Safety Report 5283215-2 (Version None)
Quarter: 2007Q2

REPORT INFORMATION
  Report Type: 
  Country: None (occurrence: None)
  Receive Date: 20070402
  Receipt Date: 20070322
  Transmission Date: 20071010
  Serious: Yes (Other)
  Sender: FDA-Public Use
  Company Number: 2007JP000912

PATIENT
  Age: 24 Year
  Sex: Male
  Weight: 60 kg

DRUGS (13)
  1. CEFAMEZIN [Suspect]
     Route: 042
     Dates: start: 20051228, end: 20051228
  2. FOSFOMYCIN [Concomitant]
     Route: 042
  3. SOLITA-T3 [Concomitant]
     Dates: start: 20051228, end: 20051229
  4. VEEN-D [Concomitant]
     Route: 042
     Dates: start: 20051228, end: 20051228
  5. GASTER [Concomitant]
     Route: 042
     Dates: start: 20051228, end: 20051228
  6. PROPOFOL [Concomitant]
     Route: 042
     Dates: start: 20051228, end: 20051228
  7. XYLOCAINE [Concomitant]
  8. ROPIVACAINE [Concomitant]
     Route: 065
     Dates: start: 20051228, end: 20051228
  9. VECURONIUM BROMIDE [Concomitant]
     Route: 042
     Dates: start: 20051228, end: 20051228
  10. DORMICUM [Concomitant]
     Route: 030
  11. FENTANEST [Concomitant]
     Route: 042
  12. SEVOFLURANE [Concomitant]
     Route: 055
  13. VEEN F [Concomitant]
     Route: 065

REACTIONS (5)
  - ABDOMINAL PAIN [None]
  - ANAPHYLACTIC REACTION [None]
  - BLOOD PRESSURE DECREASED [None]
  - FLUSHING [None]
  - HOT FLUSH [None]
